FAERS Safety Report 9543731 (Version 1)
Quarter: 2013Q2

REPORT INFORMATION
  Report Type: Spontaneous
  Country: US (occurrence: None)
  Receive Date: 20130524
  Receipt Date: 20130524
  Transmission Date: 20140414
  Serious: No
  Sender: FDA-Public Use
  Company Number: PHEH2013US002575

PATIENT
  Age: 47 Year
  Sex: Male
  Weight: 70.3 kg

DRUGS (6)
  1. GILENYA [Suspect]
     Indication: MULTIPLE SCLEROSIS
     Route: 048
  2. CLONAZEPAM [Concomitant]
  3. SIMVASTATIN [Concomitant]
  4. VITAMIN B COMP (CYANOCOBALAMIN, PYRIDOXINE HYDROCHLORIDE, THIAMINE HYDROCHLORIDE) [Concomitant]
  5. GALANTAMINE [Concomitant]
  6. VIT D (ERGOCALCIFEROL) [Concomitant]

REACTIONS (5)
  - Insomnia [None]
  - Hypoaesthesia [None]
  - Cognitive disorder [None]
  - Gait disturbance [None]
  - Paraesthesia [None]
